FAERS Safety Report 7237711 (Version 2)
Quarter: 2014Q3

REPORT INFORMATION
  Report Type: Spontaneous
  Country: US (occurrence: None)
  Receive Date: 20091217
  Receipt Date: 20140723
  Transmission Date: 20150326
  Serious: Yes (Hospitalization, Other)
  Sender: FDA-Public Use
  Company Number: 2009S1008779

PATIENT
  Age: 59 Year
  Sex: Female

DRUGS (7)
  1. PHOSPHO-SODA [Suspect]
     Active Substance: SODIUM PHOSPHATE, DIBASIC\SODIUM PHOSPHATE, MONOBASIC
     Indication: COLONOSCOPY
     Dosage: PO
     Route: 048
  2. CELEXA [Concomitant]
     Active Substance: CITALOPRAM HYDROBROMIDE
  3. COMBIVENT INHALER (IPRATROPIUM BROMIDE, SALBUTAMOL SULFATE) [Concomitant]
  4. HYDROCHLOROTHIAZIDE. [Concomitant]
     Active Substance: HYDROCHLOROTHIAZIDE
  5. VASOTEC (ENALAPRIL MALEATE) [Concomitant]
  6. PROCARDIA [Concomitant]
     Active Substance: NIFEDIPINE
  7. KLONOPIN (CLONAZEPAM) [Concomitant]

REACTIONS (12)
  - Renal failure acute [None]
  - Renal failure [None]
  - Irritable bowel syndrome [None]
  - Renal failure chronic [None]
  - Occult blood positive [None]
  - Dehydration [None]
  - Abdominal discomfort [None]
  - Bronchitis [None]
  - Haemorrhoids [None]
  - Gastroenteritis [None]
  - Constipation [None]
  - Sinusitis [None]

NARRATIVE: CASE EVENT DATE: 20060607
